FAERS Safety Report 18052204 (Version 2)
Quarter: 2020Q3

REPORT INFORMATION
  Report Type: Report from Study
  Country: US (occurrence: US)
  Receive Date: 20200722
  Receipt Date: 20200812
  Transmission Date: 20201103
  Serious: Yes (Hospitalization)
  Sender: FDA-Public Use
  Company Number: US-BAXTER-2020BAX014538

PATIENT
  Age: 14 Year
  Sex: Male
  Weight: 119.3 kg

DRUGS (28)
  1. INCB018424 [Suspect]
     Active Substance: RUXOLITINIB
     Indication: ACUTE LYMPHOCYTIC LEUKAEMIA
     Dosage: TABLET, FIRST DOSE, DAYS 1?14, 29?42
     Route: 048
     Dates: start: 20200409
  2. CYTARABINE. [Suspect]
     Active Substance: CYTARABINE
     Indication: ACUTE LYMPHOCYTIC LEUKAEMIA
     Dosage: FIRST DOSE, DAYS 1?4, 8?11, 29?32
     Route: 042
     Dates: start: 20200409
  3. INCB018424 [Suspect]
     Active Substance: RUXOLITINIB
     Dosage: TABLET, LAST DOSE PRIOR TO THE SAE DELAYED METHOTREXATE CLEARANCE
     Route: 048
     Dates: start: 20200703, end: 20200703
  4. VINCRISTINE [Suspect]
     Active Substance: VINCRISTINE
     Dosage: LAST DOSE PRIOR TO THE SAE ERWINIA ASPARAGINASE TOXICITY
     Route: 042
     Dates: start: 20200605, end: 20200605
  5. OMEGA 3 [Concomitant]
     Active Substance: OMEGA-3 FATTY ACIDS
     Indication: PRODUCT USED FOR UNKNOWN INDICATION
     Route: 065
     Dates: start: 20200529
  6. CYCLOPHOSPHAMIDE FOR INJECTION, USP [Suspect]
     Active Substance: CYCLOPHOSPHAMIDE
     Dosage: LAST DOSE PRIOR TO THE SAE ERWINIA ASPARAGINASE TOXICITY
     Route: 042
     Dates: start: 20200522, end: 20200522
  7. INCB018424 [Suspect]
     Active Substance: RUXOLITINIB
     Dosage: TABLET, LAST DOSE PRIOR TO THE SAE ERWINIA ASPARAGINASE TOXICITY
     Route: 048
     Dates: start: 20200604, end: 20200604
  8. MERCAPTOPURINE. [Suspect]
     Active Substance: MERCAPTOPURINE
     Indication: ACUTE LYMPHOCYTIC LEUKAEMIA
     Dosage: TABLET, FIRST DOSE, DAYS 1?14, 29?42
     Route: 048
     Dates: start: 20200409
  9. ASPARAGINASE [Suspect]
     Active Substance: ASPARAGINASE
     Indication: ACUTE LYMPHOCYTIC LEUKAEMIA
     Dosage: DAY 47, FIRST AND LAST DOSE PRIOR TO THE SAE ERWINIA ASPARAGINASE TOXICITY
     Route: 030
     Dates: start: 20200608, end: 20200608
  10. ASPARAGINASE [Suspect]
     Active Substance: ASPARAGINASE
     Route: 030
     Dates: start: 20200612
  11. ONDANSETRON [Concomitant]
     Active Substance: ONDANSETRON
     Indication: PRODUCT USED FOR UNKNOWN INDICATION
     Route: 065
     Dates: start: 20200605, end: 20200617
  12. MERCAPTOPURINE. [Suspect]
     Active Substance: MERCAPTOPURINE
     Dosage: TABLET, LAST DOSE PRIOR TO THE SAE ERWINIA ASPARAGINASE TOXICITY
     Route: 048
     Dates: start: 20200604, end: 20200604
  13. VINCRISTINE [Suspect]
     Active Substance: VINCRISTINE
     Indication: ACUTE LYMPHOCYTIC LEUKAEMIA
     Dosage: FIRST DOSE, DAYS 15, 22, 43, 50
     Route: 042
     Dates: start: 20200423
  14. ASPARAGINASE [Suspect]
     Active Substance: ASPARAGINASE
     Route: 030
     Dates: start: 20200610
  15. LEUCOVORIN. [Suspect]
     Active Substance: LEUCOVORIN
     Dosage: TABLET, LAST DOSE PRIOR TO THE SAE DELAYED METHOTREXATE CLEARANCE
     Route: 048
     Dates: start: 20200704, end: 20200704
  16. CYCLOPHOSPHAMIDE FOR INJECTION, USP [Suspect]
     Active Substance: CYCLOPHOSPHAMIDE
     Indication: ACUTE LYMPHOCYTIC LEUKAEMIA
     Dosage: FIRST DOSE, DAYS 1 AND 29
     Route: 042
     Dates: start: 20200409
  17. CYTARABINE. [Suspect]
     Active Substance: CYTARABINE
     Dosage: LAST DOSE PRIOR TO THE SAE ERWINIA ASPARAGINASE TOXICITY
     Route: 042
     Dates: start: 20200601, end: 20200601
  18. MERCAPTOPURINE. [Suspect]
     Active Substance: MERCAPTOPURINE
     Dosage: TABLET, DAYS 1?4
     Route: 048
     Dates: start: 20200701
  19. METHOTREXATE. [Suspect]
     Active Substance: METHOTREXATE
     Indication: ACUTE LYMPHOCYTIC LEUKAEMIA
     Dosage: DAYS 1, 8, 15, 22, FIRST DOSE
     Route: 037
     Dates: start: 20200409
  20. METHOTREXATE. [Suspect]
     Active Substance: METHOTREXATE
     Dosage: LAST DOSE PRIOR TO THE SAE DELAYED METHOTREXATE CLEARANCE
     Route: 037
     Dates: start: 20200701, end: 20200701
  21. GEMFIBROZIL. [Concomitant]
     Active Substance: GEMFIBROZIL
     Indication: PRODUCT USED FOR UNKNOWN INDICATION
     Route: 065
     Dates: start: 20200605, end: 20200713
  22. VINCRISTINE [Suspect]
     Active Substance: VINCRISTINE
     Dosage: DAYS 15, 22, 43, 50
     Route: 042
     Dates: start: 20200701
  23. LEUCOVORIN. [Suspect]
     Active Substance: LEUCOVORIN
     Indication: ACUTE LYMPHOCYTIC LEUKAEMIA
     Dosage: TABLET, DAYS 3?4, FIRST DOSE
     Route: 048
     Dates: start: 20200703
  24. METHOTREXATE. [Suspect]
     Active Substance: METHOTREXATE
     Dosage: LAST DOSE PRIOR TO THE SERIOUS ADVERSE EVENT (SAE) ERWINIA ASPARAGINASE TOXICITY
     Route: 037
     Dates: start: 20200430, end: 20200430
  25. VINCRISTINE [Suspect]
     Active Substance: VINCRISTINE
     Dosage: LAST DOSE PRIOR TO THE SAE DELAYED METHOTREXATE CLEARANCE
     Route: 042
     Dates: start: 20200701, end: 20200701
  26. PEGASPARGASE [Suspect]
     Active Substance: PEGASPARGASE
     Indication: ACUTE LYMPHOCYTIC LEUKAEMIA
     Dosage: DAY 15, FIRST DOSE
     Route: 042
     Dates: start: 20200423
  27. PEGASPARGASE [Suspect]
     Active Substance: PEGASPARGASE
     Dosage: LAST DOSE PRIOR TO THE SAE ERWINIA ASPARAGINASE TOXICITY
     Route: 042
     Dates: start: 20200505, end: 20200505
  28. METHOTREXATE. [Suspect]
     Active Substance: METHOTREXATE
     Indication: ACUTE LYMPHOCYTIC LEUKAEMIA
     Dosage: FIRST AND LAST DOSE 12230MG DAY 1 PRIOR TO SAE DELAYED METHOTREXATE CLEARANCE, DAY 1
     Route: 042
     Dates: start: 20200701, end: 20200701

REACTIONS (9)
  - Drug clearance decreased [Recovered/Resolved]
  - Hyponatraemia [Recovering/Resolving]
  - Nausea [Recovering/Resolving]
  - Toxicity to various agents [Recovering/Resolving]
  - Hyperammonaemia [Recovering/Resolving]
  - Abdominal pain [Recovering/Resolving]
  - Hyperglycaemia [Recovering/Resolving]
  - Vomiting [Recovering/Resolving]
  - Dizziness [Recovering/Resolving]

NARRATIVE: CASE EVENT DATE: 20200609
